FAERS Safety Report 4783021-9 (Version None)
Quarter: 2005Q3

REPORT INFORMATION
  Report Type: 
  Country: None (occurrence: None)
  Receive Date: 20050929
  Receipt Date: 20050812
  Transmission Date: 20060218
  Serious: Yes (Other)
  Sender: FDA-Public Use
  Company Number: 200516204US

PATIENT
  Sex: Female
  Weight: 46.4 kg

DRUGS (5)
  1. LANTUS [Suspect]
     Indication: DIABETES MELLITUS INSULIN-DEPENDENT
     Dosage: DOSE: UNKNOWN
     Route: 051
     Dates: start: 20040101, end: 20041101
  2. HUMULIN 70/30 [Concomitant]
     Dosage: DOSE: UNKNOWN
  3. HUMALOG [Concomitant]
     Dosage: DOSE: UNKNOWN; FREQUENCY: BEFORE MEALS
  4. LITHIUM [Concomitant]
     Dosage: DOSE: UNKNOWN
  5. PSYCHOTROPIC AGENTS [Concomitant]
     Dosage: DOSE: UNKNOWN

REACTIONS (6)
  - DEPRESSION [None]
  - DIABETES MELLITUS INADEQUATE CONTROL [None]
  - FIBROMYALGIA [None]
  - GLYCOSYLATED HAEMOGLOBIN INCREASED [None]
  - STRESS [None]
  - WEIGHT DECREASED [None]
